FAERS Safety Report 19362686 (Version 1)
Quarter: 2021Q2

REPORT INFORMATION
  Report Type: Spontaneous
  Country: NL (occurrence: NL)
  Receive Date: 20210602
  Receipt Date: 20210602
  Transmission Date: 20210717
  Serious: Yes (Other)
  Sender: FDA-Public Use
  Company Number: NL-MYLANLABS-2021M1031770

PATIENT
  Age: 59 Year
  Sex: Female

DRUGS (10)
  1. CETIRIZINE [Suspect]
     Active Substance: CETIRIZINE HYDROCHLORIDE
     Indication: HYPERSENSITIVITY
  2. HYDROCHLOORTHIAZIDE [Concomitant]
     Active Substance: HYDROCHLOROTHIAZIDE
     Dosage: TABLET, 12,5 MG (MILLIGRAM)
  3. PANTOPRAZOL                        /01263201/ [Concomitant]
     Active Substance: PANTOPRAZOLE
     Dosage: MAAGSAPRESISTENTE TABLET, 40 MG (MILLIGRAM)
  4. EZETIMIBE. [Concomitant]
     Active Substance: EZETIMIBE
     Dosage: 10 MILLIGRAM
  5. SIMVASTATINE [Concomitant]
     Active Substance: SIMVASTATIN
     Dosage: FILMOMHULDE TABLET, 40 MG (MILLIGRAM)
  6. CETIRIZINE [Suspect]
     Active Substance: CETIRIZINE HYDROCHLORIDE
     Indication: SEASONAL ALLERGY
     Dosage: 1 X PER DAY PIECE
     Dates: start: 20210304, end: 20210305
  7. DIPHANTOINE?Z [Suspect]
     Active Substance: PHENYTOIN SODIUM
     Dosage: TABLET, 100 MG (MILLIGRAM)
  8. CLOPIDOGREL [Concomitant]
     Active Substance: CLOPIDOGREL BISULFATE
     Dosage: TABLET, 75 MG (MILLIGRAM)
  9. BUDESONIDE NOVOLIZER [Concomitant]
     Active Substance: BUDESONIDE
     Dosage: INHALATION POWDER, 400 ?G/DOSE (MICROGRAMS PER DOSE)
  10. CLOBAZAM. [Concomitant]
     Active Substance: CLOBAZAM
     Dosage: TABLET, 10 MG (MILLIGRAM)

REACTIONS (1)
  - Epilepsy [Recovering/Resolving]

NARRATIVE: CASE EVENT DATE: 20210304
